FAERS Safety Report 11751210 (Version 1)
Quarter: 2015Q4

REPORT INFORMATION
  Report Type: Spontaneous
  Country: US (occurrence: None)
  Receive Date: 20151118
  Receipt Date: 20151118
  Transmission Date: 20160304
  Serious: Yes (Hospitalization, Other)
  Sender: FDA-Public Use
  Company Number: US-MDT-ADR-2015-02181

PATIENT
  Age: 73 Year
  Sex: Male

DRUGS (2)
  1. COMPOUNDED BACLOFEN INTRATHECAL 150 MCG/DAY [Suspect]
     Active Substance: BACLOFEN
     Indication: MUSCLE SPASTICITY
     Dosage: 75 MCG/DAY
  2. GABLOFEN [Suspect]
     Active Substance: BACLOFEN

REACTIONS (6)
  - Unresponsive to stimuli [None]
  - Lethargy [None]
  - Muscle spasticity [None]
  - Renal disorder [None]
  - Incorrect drug administration rate [None]
  - Underdose [None]
